FAERS Safety Report 6224969-8 (Version None)
Quarter: 2009Q2

REPORT INFORMATION
  Report Type: 
  Country: None (occurrence: None)
  Receive Date: 20090612
  Receipt Date: 20090402
  Transmission Date: 20091009
  Serious: No
  Sender: FDA-Public Use
  Company Number: US-ABBOTT-09P-163-0566483-00

PATIENT
  Sex: Female
  Weight: 55.388 kg

DRUGS (10)
  1. HUMIRA [Suspect]
     Indication: RHEUMATOID ARTHRITIS
     Route: 058
     Dates: start: 20090119, end: 20090120
  2. HUMIRA [Suspect]
     Indication: CROHN'S DISEASE
     Route: 058
     Dates: start: 20090202, end: 20090203
  3. HUMIRA [Suspect]
     Route: 058
     Dates: start: 20090301
  4. LEVOTHYROXINE [Concomitant]
     Indication: DRUG USE FOR UNKNOWN INDICATION
     Route: 048
  5. METOPROLOL SUCCINATE [Concomitant]
     Indication: DRUG USE FOR UNKNOWN INDICATION
     Route: 048
  6. OMEPRAZOLE [Concomitant]
     Indication: DRUG USE FOR UNKNOWN INDICATION
     Route: 048
  7. PROBIOTIC BLEND FOR COLON [Concomitant]
     Indication: DRUG USE FOR UNKNOWN INDICATION
  8. CALCIUM 500 PLUS D [Concomitant]
     Indication: DRUG USE FOR UNKNOWN INDICATION
  9. M.V.I. [Concomitant]
     Indication: DRUG USE FOR UNKNOWN INDICATION
  10. METHOTREXATE [Concomitant]
     Indication: DRUG USE FOR UNKNOWN INDICATION

REACTIONS (1)
  - DRUG INEFFECTIVE [None]
